FAERS Safety Report 7828593-2 (Version None)
Quarter: 2011Q4

REPORT INFORMATION
  Report Type: 
  Country: None (occurrence: None)
  Receive Date: 20111020
  Receipt Date: 20111010
  Transmission Date: 20120403
  Serious: Yes (Hospitalization)
  Sender: FDA-Public Use
  Company Number: IT-JNJFOC-20110704455

PATIENT
  Sex: Female

DRUGS (3)
  1. TRABECTEDIN [Suspect]
     Indication: OVARIAN CANCER
     Route: 042
     Dates: start: 20110406, end: 20110516
  2. DOXORUBICIN HYDROCHLORIDE [Suspect]
     Route: 042
     Dates: start: 20110825
  3. DOXORUBICIN HYDROCHLORIDE [Suspect]
     Indication: OVARIAN CANCER
     Route: 042
     Dates: start: 20110406, end: 20110516

REACTIONS (1)
  - ATRIAL FIBRILLATION [None]
